FAERS Safety Report 9165064 (Version 1)
Quarter: 2013Q1

REPORT INFORMATION
  Report Type: Spontaneous
  Country: US (occurrence: None)
  Receive Date: 20130228
  Receipt Date: 20130228
  Transmission Date: 20140127
  Serious: Yes (Other)
  Sender: FDA-Public Use
  Company Number: GPV/ILR/13/0028193

PATIENT
  Age: 73 Year
  Sex: Female

DRUGS (1)
  1. ATOCOR [Suspect]
     Indication: MYOCARDIAL ISCHAEMIA
     Route: 048
     Dates: start: 20120710

REACTIONS (3)
  - Dyspnoea [None]
  - Headache [None]
  - Rash [None]
